FAERS Safety Report 10573153 (Version 3)
Quarter: 2014Q4

REPORT INFORMATION
  Report Type: Spontaneous
  Country: JP (occurrence: None)
  Receive Date: 20141106
  Receipt Date: 20141229
  Transmission Date: 20150529
  Serious: Yes (Other)
  Sender: FDA-Public Use
  Company Number: 2014JP000618

PATIENT
  Age: 37 Year
  Sex: Male
  Weight: 90.6 kg

DRUGS (5)
  1. CALTAN [Concomitant]
     Active Substance: CALCIUM CARBONATE
  2. FESIN [Concomitant]
     Active Substance: IRON SUCROSE
  3. RIONA [Suspect]
     Active Substance: FERRIC CITRATE ANHYDROUS
     Indication: HYPERPHOSPHATAEMIA
     Route: 048
     Dates: start: 20140815, end: 20140905
  4. PHOSBLOCK (SEVELAMER HYDROCHLORIDE) [Concomitant]
     Active Substance: SEVELAMER HYDROCHLORIDE
  5. FOSRENOL [Concomitant]
     Active Substance: LANTHANUM CARBONATE

REACTIONS (1)
  - Haematocrit increased [None]

NARRATIVE: CASE EVENT DATE: 20141013
